FAERS Safety Report 7678775-8 (Version None)
Quarter: 2011Q3

REPORT INFORMATION
  Report Type: 
  Country: None (occurrence: None)
  Receive Date: 20110811
  Receipt Date: 20110808
  Transmission Date: 20111222
  Serious: Yes (Death)
  Sender: FDA-Public Use
  Company Number: IT-GILEAD-2011-0042726

PATIENT

DRUGS (3)
  1. TRUVADA [Suspect]
     Indication: HIV INFECTION
     Route: 064
     Dates: start: 20071221, end: 20110720
  2. REYATAZ [Suspect]
     Indication: HIV INFECTION
     Route: 064
     Dates: start: 20071221, end: 20110720
  3. NORVIR [Concomitant]
     Indication: HIV INFECTION
     Route: 064
     Dates: start: 20071221, end: 20110720

REACTIONS (2)
  - INTRA-UTERINE DEATH [None]
  - GENERALISED OEDEMA [None]
